FAERS Safety Report 4498704-8 (Version None)
Quarter: 2004Q3

REPORT INFORMATION
  Report Type: 
  Country: None (occurrence: None)
  Receive Date: 20040927
  Receipt Date: 20040618
  Transmission Date: 20050211
  Serious: No
  Sender: FDA-Public Use
  Company Number: USA040670581

PATIENT
  Age: 6 Year
  Sex: Male
  Weight: 21 kg

DRUGS (3)
  1. STRATTERA [Suspect]
     Indication: ATTENTION DEFICIT/HYPERACTIVITY DISORDER
     Dosage: 25 MG/1 DAY
     Dates: start: 20040616
  2. ALBUTEROL [Concomitant]
  3. CLARITIN [Concomitant]

REACTIONS (9)
  - FATIGUE [None]
  - FEELING ABNORMAL [None]
  - NASAL DISCOMFORT [None]
  - PHARYNGOLARYNGEAL PAIN [None]
  - RETCHING [None]
  - SNEEZING [None]
  - SOMNOLENCE [None]
  - THROAT IRRITATION [None]
  - VOMITING [None]
